FAERS Safety Report 7727291-3 (Version None)
Quarter: 2011Q3

REPORT INFORMATION
  Report Type: 
  Country: None (occurrence: None)
  Receive Date: 20110902
  Receipt Date: 20110825
  Transmission Date: 20111222
  Serious: Yes (Other)
  Sender: FDA-Public Use
  Company Number: UA-BAYER-2011-080453

PATIENT
  Age: 24 Year
  Sex: Female
  Weight: 68.027 kg

DRUGS (2)
  1. YAZ [Suspect]
     Indication: CONTRACEPTION
     Dosage: UNK
     Dates: start: 20090501, end: 20091001
  2. YAZ [Suspect]
     Dosage: UNK
     Dates: start: 20090501, end: 20091001

REACTIONS (6)
  - HEADACHE [None]
  - VOMITING [None]
  - CEREBROVASCULAR ACCIDENT [None]
  - HYPOAESTHESIA [None]
  - HAEMORRHAGIC STROKE [None]
  - NAUSEA [None]
